FAERS Safety Report 7475522-X (Version None)
Quarter: 2011Q2

REPORT INFORMATION
  Report Type: 
  Country: None (occurrence: None)
  Receive Date: 20110512
  Receipt Date: 20110509
  Transmission Date: 20111010
  Serious: No
  Sender: FDA-Public Use
  Company Number: PHHY2010BR77415

PATIENT
  Sex: Female

DRUGS (2)
  1. DIOVAN HCT [Suspect]
     Dosage: 320 MG OF VALS AND 12.5 MG OF HYDR
  2. DIOVAN HCT [Suspect]
     Dosage: 160 MG OF VALS AND 5 MG OF HYDR

REACTIONS (1)
  - BLOOD PRESSURE FLUCTUATION [None]
